FAERS Safety Report 5129969-7 (Version None)
Quarter: 2006Q4

REPORT INFORMATION
  Report Type: 
  Country: None (occurrence: None)
  Receive Date: 20061013
  Receipt Date: 20061004
  Transmission Date: 20070319
  Serious: Yes (Other)
  Sender: FDA-Public Use
  Company Number: 2006121848

PATIENT
  Age: 70 Year
  Sex: Female

DRUGS (4)
  1. TAHOR (ATORVASTATIN) [Suspect]
     Dosage: (10 MG)
     Dates: start: 20020101
  2. TRAMADOL HCL [Concomitant]
  3. DIACEREIN (DIACEREIN) [Concomitant]
  4. OMEPRAZOLE [Concomitant]

REACTIONS (2)
  - TEMPORAL ARTERITIS [None]
  - TENDONITIS [None]
